FAERS Safety Report 9889727 (Version 1)
Quarter: 2014Q1

REPORT INFORMATION
  Report Type: Spontaneous
  Country: US (occurrence: US)
  Receive Date: 20140211
  Receipt Date: 20140211
  Transmission Date: 20141002
  Serious: Yes (Other)
  Sender: FDA-Public Use
  Company Number: US-PFIZER INC-2014037287

PATIENT
  Age: 84 Year
  Sex: Female
  Weight: 63.49 kg

DRUGS (5)
  1. LIPITOR [Suspect]
     Indication: BLOOD CHOLESTEROL INCREASED
     Dosage: 40 MG, 1X/DAY, AT NIGHT
     Route: 048
  2. ATENOLOL [Concomitant]
     Dosage: 25 MG, 1X/DAY, AT NIGHT
  3. HYDROCHLOROTHIAZIDE WITH TRIAMTERENE [Concomitant]
     Dosage: UNK, 1X/DAY
  4. MAGNESIUM [Concomitant]
     Dosage: 400 MG, 4X/DAY
     Dates: start: 199908
  5. XARELTO [Concomitant]
     Indication: ANTICOAGULANT THERAPY
     Dosage: UNK
     Dates: start: 199908

REACTIONS (3)
  - Cerebrovascular accident [Unknown]
  - Hearing impaired [Unknown]
  - Body height decreased [Unknown]
